FAERS Safety Report 9146210 (Version 2)
Quarter: 2013Q1

REPORT INFORMATION
  Report Type: Spontaneous
  Country: JP (occurrence: JP)
  Receive Date: 20130307
  Receipt Date: 20130328
  Transmission Date: 20140127
  Serious: Yes (Hospitalization, Other)
  Sender: FDA-Public Use
  Company Number: PHHY2013JP020400

PATIENT
  Age: 61 Year
  Sex: Male

DRUGS (1)
  1. TEGRETOL [Suspect]
     Indication: EPILEPSY
     Dosage: 400 MG, DAILY
     Route: 048
     Dates: start: 20110422, end: 20110428

REACTIONS (8)
  - Incontinence [Unknown]
  - Loss of consciousness [Unknown]
  - Echocardiogram abnormal [Unknown]
  - Abnormal behaviour [Unknown]
  - Atrial fibrillation [Unknown]
  - Pancytopenia [Recovering/Resolving]
  - Convulsion [Unknown]
  - Headache [Unknown]
